FAERS Safety Report 5946940-3 (Version None)
Quarter: 2008Q4

REPORT INFORMATION
  Report Type: 
  Country: None (occurrence: None)
  Receive Date: 20081110
  Receipt Date: 20081031
  Transmission Date: 20090506
  Serious: Yes (Hospitalization)
  Sender: FDA-Public Use
  Company Number: CA-ABBOTT-08P-028-0485109-00

PATIENT
  Sex: Male

DRUGS (5)
  1. HUMIRA [Suspect]
     Indication: CROHN'S DISEASE
     Route: 058
     Dates: start: 20081002
  2. ACETAMINOPHEN [Concomitant]
     Indication: ABDOMINAL PAIN
     Dates: start: 20050422
  3. ACETAMINOPHEN [Concomitant]
  4. DICYCLOMINE HCL [Concomitant]
     Indication: CROHN'S DISEASE
     Dates: start: 20050125
  5. DICYCLOMINE HCL [Concomitant]

REACTIONS (1)
  - ANAL FISTULA [None]
